FAERS Safety Report 4424915-3 (Version None)
Quarter: 2004Q3

REPORT INFORMATION
  Report Type: 
  Country: None (occurrence: None)
  Receive Date: 20040809
  Receipt Date: 20040727
  Transmission Date: 20050211
  Serious: No
  Sender: FDA-Public Use
  Company Number: A04200400694

PATIENT
  Sex: Female

DRUGS (1)
  1. ELOXATIN [Suspect]
     Route: 042

REACTIONS (2)
  - CARDIOVASCULAR DISORDER [None]
  - PULMONARY OEDEMA [None]
